FAERS Safety Report 9628596 (Version 2)
Quarter: 2013Q4

REPORT INFORMATION
  Report Type: Spontaneous
  Country: FR (occurrence: FR)
  Receive Date: 20131017
  Receipt Date: 20131023
  Transmission Date: 20140711
  Serious: Yes (Other)
  Sender: FDA-Public Use
  Company Number: FR-UCBSA-100240

PATIENT
  Age: 34 Year
  Sex: Male

DRUGS (2)
  1. KEPPRA [Suspect]
     Indication: EPILEPSY
     Route: 048
     Dates: start: 2009
  2. LAMICTAL [Concomitant]
     Indication: EPILEPSY
     Route: 048
     Dates: start: 2009, end: 2013

REACTIONS (2)
  - Oligospermia [Not Recovered/Not Resolved]
  - Asthenospermia [Not Recovered/Not Resolved]
